FAERS Safety Report 10246509 (Version 3)
Quarter: 2014Q3

REPORT INFORMATION
  Report Type: Spontaneous
  Country: GB (occurrence: GB)
  Receive Date: 20140619
  Receipt Date: 20140808
  Transmission Date: 20150326
  Serious: Yes (Death, Other)
  Sender: FDA-Public Use
  Company Number: GB-ORION CORPORATION ORION PHARMA-ENTC2014-0217

PATIENT
  Age: 77 Year
  Sex: Male

DRUGS (10)
  1. ROTIGOTINE [Suspect]
     Active Substance: ROTIGOTINE
     Route: 062
  2. SINEMET [Suspect]
     Active Substance: CARBIDOPA\LEVODOPA
     Route: 065
  3. AMLODIPINE [Suspect]
     Active Substance: AMLODIPINE BESYLATE
     Route: 065
  4. STALEVO [Suspect]
     Active Substance: CARBIDOPA\ENTACAPONE\LEVODOPA
     Route: 065
  5. WARFARIN [Suspect]
     Active Substance: WARFARIN
     Route: 065
  6. AZILECT [Suspect]
     Active Substance: RASAGILINE MESYLATE
     Route: 065
     Dates: start: 201403
  7. MADOPAR [Suspect]
     Active Substance: BENSERAZIDE HYDROCHLORIDE\LEVODOPA
     Route: 065
  8. ROTIGOTINE [Suspect]
     Active Substance: ROTIGOTINE
     Indication: PARKINSON^S DISEASE
     Route: 062
  9. SINEMET CR [Suspect]
     Active Substance: CARBIDOPA\LEVODOPA
     Route: 065
  10. APOMORPHINE [Concomitant]
     Active Substance: APOMORPHINE
     Route: 065

REACTIONS (8)
  - Drooling [Unknown]
  - Dysphonia [Unknown]
  - Myocardial infarction [Fatal]
  - Muscle rigidity [Unknown]
  - Gait disturbance [Unknown]
  - Bradykinesia [Unknown]
  - Drug effect decreased [Unknown]
  - Resting tremor [Unknown]

NARRATIVE: CASE EVENT DATE: 201305
